FAERS Safety Report 23738379 (Version 1)
Quarter: 2024Q2

REPORT INFORMATION
  Report Type: Report from Study
  Country: GB (occurrence: GB)
  Receive Date: 20240412
  Receipt Date: 20240412
  Transmission Date: 20240716
  Serious: Yes (Death, Hospitalization, Other)
  Sender: FDA-Public Use
  Company Number: GB-AKCEA THERAPEUTICS, INC.-2024IS002846

PATIENT
  Age: 60 Year
  Sex: Male

DRUGS (2)
  1. CLARITHROMYCIN [Suspect]
     Active Substance: CLARITHROMYCIN
     Indication: Peripheral swelling
     Dosage: UNK
     Route: 065
     Dates: end: 20201123
  2. TEGSEDI [Suspect]
     Active Substance: INOTERSEN SODIUM
     Indication: Hereditary neuropathic amyloidosis
     Dosage: 284 MILLIGRAM, UNK
     Route: 058

REACTIONS (12)
  - Sepsis [Fatal]
  - Urinary tract infection [Fatal]
  - Chest discomfort [Fatal]
  - Liver disorder [Fatal]
  - Urinary retention [Unknown]
  - Malaise [Unknown]
  - Confusional state [Unknown]
  - Night sweats [Unknown]
  - Peripheral swelling [Unknown]
  - Nausea [Unknown]
  - Rash [Unknown]
  - Somnolence [Unknown]

NARRATIVE: CASE EVENT DATE: 20201101
